FAERS Safety Report 12972412 (Version 1)
Quarter: 2016Q4

REPORT INFORMATION
  Report Type: Report from Study
  Country: KR (occurrence: KR)
  Receive Date: 20161124
  Receipt Date: 20161124
  Transmission Date: 20170207
  Serious: No
  Sender: FDA-Public Use
  Company Number: KR-PROSTRAKAN-2016-KR-0164

PATIENT

DRUGS (12)
  1. GRANISETRON [Suspect]
     Active Substance: GRANISETRON
     Indication: PROPHYLAXIS OF NAUSEA AND VOMITING
     Dosage: UNKNOWN
     Route: 062
     Dates: start: 20110601, end: 20110608
  2. INTERMAX [Concomitant]
     Indication: PRODUCT USED FOR UNKNOWN INDICATION
     Dosage: UNKNOWN
     Route: 065
     Dates: start: 20110607, end: 20110607
  3. H-ZYME [Concomitant]
     Indication: HEPATIC CIRRHOSIS
     Dosage: UNKNOWN
     Route: 065
     Dates: start: 20110601
  4. FLAGYL [Concomitant]
     Active Substance: METRONIDAZOLE\METRONIDAZOLE HYDROCHLORIDE
     Indication: HEPATOCELLULAR CARCINOMA
     Dosage: UNKNOWN
     Route: 065
     Dates: start: 20110603, end: 20110608
  5. CISPLAN [Concomitant]
     Active Substance: CISPLATIN
     Indication: PRODUCT USED FOR UNKNOWN INDICATION
     Dosage: UNKNOWN
     Route: 065
     Dates: start: 20110602, end: 20110602
  6. CIPROBAY [Concomitant]
     Active Substance: CIPROFLOXACIN
     Indication: HEPATOCELLULAR CARCINOMA
     Dosage: UNKNOWN
     Route: 065
     Dates: start: 20110602, end: 20110608
  7. 5-FU [Concomitant]
     Active Substance: FLUOROURACIL
     Indication: PRODUCT USED FOR UNKNOWN INDICATION
     Dosage: UNKNOWN
     Route: 065
     Dates: start: 20110607, end: 20110607
  8. BARACLUDE [Concomitant]
     Active Substance: ENTECAVIR
     Indication: CHRONIC HEPATITIS B
     Dosage: UNKNOWN
     Route: 065
     Dates: start: 20110601
  9. URSA [Concomitant]
     Indication: HEPATIC CIRRHOSIS
     Dosage: UNKNOWN
     Route: 065
     Dates: start: 20110601
  10. BONKY [Concomitant]
     Indication: HEPATIC CIRRHOSIS
     Dosage: UNKNOWN
     Route: 065
     Dates: start: 20110601
  11. WELLTAMIN [Concomitant]
     Indication: HEPATIC CIRRHOSIS
     Dosage: UNKNOWN
     Route: 065
     Dates: start: 20110601
  12. LEGALON [Concomitant]
     Active Substance: MILK THISTLE
     Indication: HEPATIC CIRRHOSIS
     Dosage: UNKNOWN
     Route: 065
     Dates: start: 20110601

REACTIONS (1)
  - Nausea [Recovering/Resolving]

NARRATIVE: CASE EVENT DATE: 20110604
